FAERS Safety Report 20065828 (Version 1)
Quarter: 2021Q4

REPORT INFORMATION
  Report Type: Spontaneous
  Country: US (occurrence: US)
  Receive Date: 20211114
  Receipt Date: 20211114
  Transmission Date: 20220304
  Serious: Yes (Life-Threatening, Hospitalization)
  Sender: FDA-Public Use
  Company Number: US-JNJFOC-20211103321

PATIENT
  Age: 46 Year
  Sex: Female
  Weight: 54.3 kg

DRUGS (1)
  1. TYLENOL PM [Suspect]
     Active Substance: ACETAMINOPHEN\DIPHENHYDRAMINE
     Indication: Suicide attempt
     Dosage: 40 TABLETS TYLENOL PM (ACETAMINOPHEN 500 MG/DIPHENHYDRAMINE 25 MG);TOTAL SINGLE DOSE: ACETAMINOPHEN
     Route: 048
     Dates: start: 20020907, end: 20020907

REACTIONS (6)
  - Suicide attempt [Unknown]
  - Pseudomonas test positive [Unknown]
  - Acute kidney injury [Unknown]
  - Hepatic necrosis [Unknown]
  - Acute hepatic failure [Unknown]
  - Intentional overdose [Unknown]
